FAERS Safety Report 5363614-0 (Version None)
Quarter: 2007Q2

REPORT INFORMATION
  Report Type: 
  Country: None (occurrence: None)
  Receive Date: 20070620
  Receipt Date: 20070618
  Transmission Date: 20071010
  Serious: Yes (Other)
  Sender: FDA-Public Use
  Company Number: B0475640A

PATIENT
  Age: 33 Year
  Sex: Female

DRUGS (2)
  1. COMBIVIR [Suspect]
     Indication: HIV INFECTION
     Route: 065
  2. NEVIRAPINE [Suspect]
     Indication: DRUG USE FOR UNKNOWN INDICATION
     Route: 065

REACTIONS (1)
  - LIPOATROPHY [None]
